FAERS Safety Report 8050874-0 (Version None)
Quarter: 2012Q1

REPORT INFORMATION
  Report Type: 
  Country: None (occurrence: None)
  Receive Date: 20120117
  Receipt Date: 20120111
  Transmission Date: 20120608
  Serious: Yes (Hospitalization, Other)
  Sender: FDA-Public Use
  Company Number: BR-SANOFI-AVENTIS-2012SA002218

PATIENT
  Age: 78 Year
  Sex: Male
  Weight: 80 kg

DRUGS (9)
  1. LANTUS [Suspect]
     Route: 058
     Dates: start: 20110101
  2. OLCADIL [Concomitant]
     Dates: start: 19970101
  3. ASPIRIN [Concomitant]
     Dates: start: 19970101
  4. SOLOSTAR [Suspect]
     Indication: DEVICE THERAPY
     Dates: start: 20110101
  5. APIDRA SOLOSTAR [Suspect]
     Dosage: 20IU BEFORE LUNCH AND 20 IU BEFORE DINNER
     Route: 058
     Dates: start: 20110101
  6. TICAGRELOR [Concomitant]
     Indication: CATHETER PLACEMENT
     Dates: start: 19970101
  7. ROSUVASTATIN CALCIUM [Concomitant]
     Dates: start: 19970101
  8. BISOPROLOL FUMARATE [Concomitant]
     Dates: start: 19970101
  9. PENTACOL [Concomitant]
     Dates: start: 19970101

REACTIONS (2)
  - ARTERIAL OCCLUSIVE DISEASE [None]
  - THYROID DISORDER [None]
